FAERS Safety Report 8372184 (Version 2)
Quarter: 2013Q1

REPORT INFORMATION
  Report Type: Report from Study
  Country: US (occurrence: US)
  Receive Date: 20120129
  Receipt Date: 20130130
  Transmission Date: 20140127
  Serious: No
  Sender: FDA-Public Use
  Company Number: US-ABBOTT-11P-163-0856640-00

PATIENT
  Age: 76 Year
  Sex: Female

DRUGS (12)
  1. HUMIRA 40 MG/0.8 ML PEN [Suspect]
     Indication: ANKYLOSING SPONDYLITIS
     Route: 058
     Dates: start: 201109, end: 201201
  2. HUMIRA 40 MG/0.8 ML PEN [Suspect]
     Dates: start: 201201
  3. GABAPENTIN [Concomitant]
     Indication: NEUROPATHY PERIPHERAL
     Dosage: 10 PILLS DAILY
  4. HYDROCODONE [Concomitant]
     Indication: PAIN
     Dosage: 10/325 DAILY
  5. LORAZEPAM [Concomitant]
     Indication: ANXIETY
  6. PREDNISONE [Concomitant]
     Indication: PRODUCT USED FOR UNKNOWN INDICATION
     Dosage: DAILY
  7. LISINOPRIL [Concomitant]
     Indication: HYPERTENSION
  8. NADOLOL [Concomitant]
     Indication: HYPERTENSION
  9. CYMBALTA [Concomitant]
     Indication: DEPRESSION
     Dosage: DAILY
  10. TRICOR [Concomitant]
     Indication: BLOOD CHOLESTEROL INCREASED
     Dosage: DAILY
  11. PROBIOTICS [Concomitant]
     Indication: PRODUCT USED FOR UNKNOWN INDICATION
  12. OPHTHALMOLOGICALS [Concomitant]
     Indication: ROSACEA

REACTIONS (7)
  - Osteoarthritis [Recovering/Resolving]
  - Drug effect incomplete [Recovering/Resolving]
  - Pain [Recovering/Resolving]
  - Back pain [Not Recovered/Not Resolved]
  - Drug ineffective [Recovering/Resolving]
  - Neck pain [Recovering/Resolving]
  - Back pain [Recovering/Resolving]
